FAERS Safety Report 9278484 (Version 1)
Quarter: 2013Q2

REPORT INFORMATION
  Report Type: Spontaneous
  Country: US (occurrence: US)
  Receive Date: 20130508
  Receipt Date: 20130508
  Transmission Date: 20140414
  Serious: Yes (Other)
  Sender: FDA-Public Use
  Company Number: US-SANOFI-AVENTIS-2013SA045724

PATIENT
  Age: 42 Year
  Sex: Female

DRUGS (1)
  1. AUBAGIO [Suspect]
     Indication: MULTIPLE SCLEROSIS
     Route: 048

REACTIONS (6)
  - Joint dislocation [Not Recovered/Not Resolved]
  - Arthralgia [Not Recovered/Not Resolved]
  - Vaginal pH abnormal [Unknown]
  - Vaginal odour [Unknown]
  - Eye movement disorder [Unknown]
  - Alopecia [Unknown]
